FAERS Safety Report 20709462 (Version 1)
Quarter: 2022Q2

REPORT INFORMATION
  Report Type: Spontaneous
  Country: US (occurrence: US)
  Receive Date: 20220414
  Receipt Date: 20220414
  Transmission Date: 20220721
  Serious: Yes (Life-Threatening, Hospitalization)
  Sender: FDA-Public Use
  Company Number: US-MYLANLABS-2022M1027044

PATIENT
  Age: 53 Year
  Sex: Male

DRUGS (4)
  1. HEPARIN [Suspect]
     Active Substance: HEPARIN SODIUM
     Indication: Anticoagulant therapy
     Dosage: UNK (SYSTEMIC HEPARIN INFUSION)
     Route: 042
  2. TRANEXAMIC ACID [Suspect]
     Active Substance: TRANEXAMIC ACID
     Indication: Pharyngeal haemorrhage
     Dosage: UNK (TOPICAL TRANEXAMIC ACID)
     Route: 065
  3. TRANEXAMIC ACID [Suspect]
     Active Substance: TRANEXAMIC ACID
     Indication: Pharyngeal haemorrhage
     Dosage: UNK (SYSTEMIC TRANEXAMIC ACID)
     Route: 065
  4. DESMOPRESSIN [Concomitant]
     Active Substance: DESMOPRESSIN
     Indication: Drug therapy
     Dosage: UNK
     Route: 065

REACTIONS (4)
  - Pulmonary haemorrhage [Recovered/Resolved]
  - Pharyngeal haemorrhage [Recovered/Resolved]
  - Haemorrhage [Recovered/Resolved]
  - Drug ineffective [Unknown]
